FAERS Safety Report 10015854 (Version 1)
Quarter: 2014Q1

REPORT INFORMATION
  Report Type: Spontaneous
  Country: US (occurrence: US)
  Receive Date: 20140317
  Receipt Date: 20140317
  Transmission Date: 20141002
  Serious: Yes (Death)
  Sender: FDA-Public Use
  Company Number: US-GLAXOSMITHKLINE-A1065167A

PATIENT
  Age: 68 Year
  Sex: Female

DRUGS (2)
  1. MEKINIST [Suspect]
     Indication: BRAIN NEOPLASM MALIGNANT
     Dosage: 2MG UNKNOWN
     Route: 065
     Dates: start: 20131001
  2. TAFINLAR [Suspect]
     Indication: BRAIN NEOPLASM MALIGNANT
     Dosage: 75MG UNKNOWN
     Route: 065
     Dates: start: 20131001

REACTIONS (1)
  - Death [Fatal]
